FAERS Safety Report 8813469 (Version 1)
Quarter: 2012Q4

REPORT INFORMATION
  Report Type: 
  Country: US (occurrence: US)
  Receive Date: 20120927
  Receipt Date: 20120927
  Transmission Date: 20130627
  Serious: No
  Sender: FDA-Public Use
  Company Number: US-AMGEN-USASP2012046563

PATIENT
  Age: 83 Year
  Sex: Male

DRUGS (5)
  1. PROLIA [Suspect]
     Indication: BONE LOSS
     Dosage: UNK
     Dates: start: 20120612
  2. ANASTROZOLE [Concomitant]
     Dosage: 1 mg, qd
  3. ANASTROZOLE [Concomitant]
  4. BICALUTAMIDE [Concomitant]
     Dosage: 1 mg, qd
  5. BICALUTAMIDE [Concomitant]

REACTIONS (2)
  - Tooth fracture [Not Recovered/Not Resolved]
  - Device breakage [Not Recovered/Not Resolved]
